FAERS Safety Report 5500261-1 (Version None)
Quarter: 2007Q4

REPORT INFORMATION
  Report Type: 
  Country: None (occurrence: None)
  Receive Date: 20071029
  Receipt Date: 20071019
  Transmission Date: 20080405
  Serious: Yes (Hospitalization)
  Sender: FDA-Public Use
  Company Number: US-ELI_LILLY_AND_COMPANY-US200710005016

PATIENT
  Age: 71 Year
  Sex: Female

DRUGS (4)
  1. ZYPREXA [Suspect]
     Indication: BIPOLAR DISORDER
     Dosage: 5 MG, UNK
  2. LITHIUM [Concomitant]
  3. ZOCOR [Concomitant]
  4. THYROID PREPARATIONS [Concomitant]

REACTIONS (4)
  - ASTHENIA [None]
  - FALL [None]
  - PNEUMONIA [None]
  - RHABDOMYOLYSIS [None]
